FAERS Safety Report 13347412 (Version 2)
Quarter: 2017Q2

REPORT INFORMATION
  Report Type: Report from Study
  Country: GB (occurrence: GB)
  Receive Date: 20170317
  Receipt Date: 20170404
  Transmission Date: 20170830
  Serious: Yes (Other)
  Sender: FDA-Public Use
  Company Number: GB-JNJFOC-20170303197

PATIENT
  Age: 66 Year
  Sex: Female

DRUGS (1)
  1. SIMPONI [Suspect]
     Active Substance: GOLIMUMAB
     Indication: PRODUCT USED FOR UNKNOWN INDICATION
     Route: 058

REACTIONS (5)
  - Lower respiratory tract infection [Not Recovered/Not Resolved]
  - Abdominal pain [Unknown]
  - Ulcer [Unknown]
  - Back pain [Unknown]
  - Mouth ulceration [Unknown]

NARRATIVE: CASE EVENT DATE: 201703
